FAERS Safety Report 23309090 (Version 1)
Quarter: 2023Q4

REPORT INFORMATION
  Report Type: Spontaneous
  Country: GB (occurrence: GB)
  Receive Date: 20231218
  Receipt Date: 20231218
  Transmission Date: 20240110
  Serious: Yes (Other)
  Sender: FDA-Public Use
  Company Number: None

PATIENT
  Age: 81 Year
  Sex: Female
  Weight: 103 kg

DRUGS (18)
  1. PREGABALIN [Suspect]
     Active Substance: PREGABALIN
     Indication: Product used for unknown indication
     Dosage: 100 MILLIGRAM, UNK
     Route: 065
  2. ATORVASTATIN [Concomitant]
     Active Substance: ATORVASTATIN
     Dosage: 1 DOSAGE FORM, HS (NIGHT)
     Route: 065
     Dates: start: 20220901
  3. CAPSAICIN [Concomitant]
     Active Substance: CAPSAICIN
     Dosage: APPLY SPARINGLY THREE TO FOUR TIMES TO AF)
     Route: 065
     Dates: start: 20230316
  4. DOXAZOSIN [Concomitant]
     Active Substance: DOXAZOSIN MESYLATE
     Dosage: 2 DOSAGE FORM
     Route: 065
     Dates: start: 20221207
  5. FLUCLOXACILLIN [Concomitant]
     Active Substance: FLUCLOXACILLIN
     Dosage: 1 DOSAGE FORM (FOR SEVEN DAY)
     Route: 065
     Dates: start: 20230914, end: 20230921
  6. FUROSEMIDE [Concomitant]
     Active Substance: FUROSEMIDE
     Dosage: 80 MILLIGRAM, BID (AT 8AM AND 12PM)
     Route: 065
     Dates: start: 20190625
  7. BIMATOPROST\TIMOLOL [Concomitant]
     Active Substance: BIMATOPROST\TIMOLOL
     Dosage: 1 DROP (LEFT EYE)
     Route: 065
     Dates: start: 20190107
  8. HYDRALAZINE [Concomitant]
     Active Substance: HYDRALAZINE HYDROCHLORIDE
     Dosage: 1 DOSAGE FORM
     Route: 065
     Dates: start: 20191125
  9. HYPROMELLOSES [Concomitant]
     Active Substance: HYPROMELLOSES
     Dosage: 1 DROP, PRN (INSTIL DROP) (AS NECESSARY)
     Route: 065
     Dates: start: 20220815
  10. LANTUS [Concomitant]
     Active Substance: INSULIN GLARGINE
     Dosage: 48 UNITS TO BE TAKEN EACH MORNING AND 36 UNITS
     Route: 065
     Dates: start: 20230804
  11. POLYETHYLENE GLYCOL 3350\POTASSIUM CHLORIDE\SODIUM BICARBONATE\SODIUM [Concomitant]
     Active Substance: POLYETHYLENE GLYCOL 3350\POTASSIUM CHLORIDE\SODIUM BICARBONATE\SODIUM CHLORIDE
     Dosage: ONE OR TWO WHEN REQUIRED
     Route: 065
     Dates: start: 20171120
  12. LERCANIDIPINE HYDROCHLORIDE [Concomitant]
     Active Substance: LERCANIDIPINE HYDROCHLORIDE
     Dosage: 1 DOSAGE FORM
     Route: 065
     Dates: start: 20171120
  13. TRAMADOL HYDROCHLORIDE [Concomitant]
     Active Substance: TRAMADOL HYDROCHLORIDE
     Dosage: 1 DOSAGE FORM
     Route: 065
     Dates: start: 20190603
  14. OMEPRAZOLE [Concomitant]
     Active Substance: OMEPRAZOLE
     Dosage: 1 DOSAGE FORM
     Route: 065
     Dates: start: 20171120
  15. ACETAMINOPHEN [Concomitant]
     Active Substance: ACETAMINOPHEN
     Dosage: 2 DOSAGE FORM
     Route: 065
     Dates: start: 20171120
  16. PIROXICAM [Concomitant]
     Active Substance: PIROXICAM
     Dosage: APPLY AS DIRECTED
     Route: 065
     Dates: start: 20190603
  17. SENNA [Concomitant]
     Active Substance: SENNA LEAF\SENNOSIDES\SENNOSIDES A AND B
     Dosage: 2 DOSAGE FORM, HS (NIGHT)
     Route: 065
     Dates: start: 20220510
  18. SEVODYNE [Concomitant]
     Dosage: APPLY PATCH TO NON-IRRITATED, NON-HAIRY
     Route: 065
     Dates: start: 20221004

REACTIONS (1)
  - Confusional state [Recovered/Resolved]
